FAERS Safety Report 9342281 (Version 1)
Quarter: 2013Q2

REPORT INFORMATION
  Report Type: Spontaneous
  Country: US (occurrence: US)
  Receive Date: 20130611
  Receipt Date: 20130611
  Transmission Date: 20140414
  Serious: Yes (Other)
  Sender: FDA-Public Use
  Company Number: US-PFIZER INC-2013172737

PATIENT
  Age: 53 Year
  Sex: Female

DRUGS (6)
  1. PREGABALIN [Suspect]
     Indication: COMPLEX PARTIAL SEIZURES
     Dosage: 50 MG, 3X/DAY (THREE DIVIDED DOSES)
  2. PREGABALIN [Suspect]
     Dosage: 100 MG, 3X/DAY
  3. LAMOTRIGINE [Concomitant]
     Dosage: 233 MG, 3X/DAY
  4. LAMOTRIGINE [Concomitant]
     Dosage: 600 MG, 1X/DAY
  5. OXCARBAZEPINE [Concomitant]
     Dosage: 600 MG, 2X/DAY
  6. OXCARBAZEPINE [Concomitant]
     Dosage: 900 MG, 1X/DAY

REACTIONS (1)
  - Complex partial seizures [Recovered/Resolved]
